FAERS Safety Report 9713443 (Version 2)
Quarter: 2014Q1

REPORT INFORMATION
  Report Type: Spontaneous
  Country: US (occurrence: US)
  Receive Date: 20131126
  Receipt Date: 20140213
  Transmission Date: 20141002
  Serious: Yes (Hospitalization, Disabling, Other)
  Sender: FDA-Public Use
  Company Number: US-ELI_LILLY_AND_COMPANY-US201311005444

PATIENT
  Sex: Female

DRUGS (2)
  1. HUMALOG LISPRO [Suspect]
     Indication: TYPE 2 DIABETES MELLITUS
     Dosage: UNK
     Route: 065
     Dates: end: 201308
  2. SIMVASTIN [Concomitant]

REACTIONS (5)
  - Wrist fracture [Unknown]
  - Fall [Recovered/Resolved]
  - Blood glucose increased [Unknown]
  - Nerve injury [Unknown]
  - Mobility decreased [Not Recovered/Not Resolved]
